FAERS Safety Report 20226822 (Version 1)
Quarter: 2021Q4

REPORT INFORMATION
  Report Type: Spontaneous
  Country: US (occurrence: US)
  Receive Date: 20211224
  Receipt Date: 20211224
  Transmission Date: 20220303
  Serious: Yes (Hospitalization, Other)
  Sender: FDA-Public Use
  Company Number: US-STRIDES ARCOLAB LIMITED-2021SP031421

PATIENT
  Age: 55 Year
  Sex: Female

DRUGS (7)
  1. BUSPIRONE HYDROCHLORIDE [Suspect]
     Active Substance: BUSPIRONE HYDROCHLORIDE
     Indication: Schizoaffective disorder
     Dosage: 15 MILLIGRAM, TID,  INSUFFLATION OF CRUSHED TABLETS
     Route: 055
  2. BUSPIRONE HYDROCHLORIDE [Suspect]
     Active Substance: BUSPIRONE HYDROCHLORIDE
     Indication: Post-traumatic stress disorder
     Dosage: UNK, RESTARTED
     Route: 065
  3. BUSPIRONE HYDROCHLORIDE [Suspect]
     Active Substance: BUSPIRONE HYDROCHLORIDE
     Indication: Anxiety
  4. TRAZODONE [Suspect]
     Active Substance: TRAZODONE HYDROCHLORIDE
     Indication: Schizoaffective disorder
     Dosage: 50 MILLIGRAM, AT BED TIME
     Route: 065
  5. TRAZODONE [Suspect]
     Active Substance: TRAZODONE HYDROCHLORIDE
     Indication: Post-traumatic stress disorder
  6. VENLAFAXINE [Concomitant]
     Active Substance: VENLAFAXINE HYDROCHLORIDE
     Indication: Schizoaffective disorder
     Dosage: 75 MILLIGRAM PER DAY
     Route: 065
  7. VENLAFAXINE [Concomitant]
     Active Substance: VENLAFAXINE HYDROCHLORIDE
     Indication: Post-traumatic stress disorder

REACTIONS (8)
  - Delusion [Unknown]
  - Behaviour disorder [Unknown]
  - Ideas of reference [Unknown]
  - Intentional product misuse [Unknown]
  - Overdose [Unknown]
  - Electric shock sensation [Unknown]
  - Drug abuse [Unknown]
  - Off label use [Unknown]
